FAERS Safety Report 4829792-4 (Version None)
Quarter: 2005Q4

REPORT INFORMATION
  Report Type: 
  Country: None (occurrence: None)
  Receive Date: 20051028
  Receipt Date: 20050719
  Transmission Date: 20060501
  Serious: No
  Sender: FDA-Public Use
  Company Number: COT_0140_2005

PATIENT
  Age: 28 Year
  Sex: Female
  Weight: 54.4316 kg

DRUGS (11)
  1. VENTAVIS [Suspect]
     Indication: PULMONARY HYPERTENSION
     Dosage: 2.5 MCG ONCE IH
     Route: 055
     Dates: start: 20050608, end: 20050608
  2. VENTAVIS [Suspect]
     Indication: PULMONARY HYPERTENSION
     Dosage: 5 MCG ONCE IH
     Route: 055
     Dates: start: 20050608, end: 20050608
  3. VENTAVIS [Suspect]
     Indication: PULMONARY HYPERTENSION
     Dosage: 2.5 MCG IH
     Route: 055
     Dates: start: 20050608
  4. EFFEXOR [Concomitant]
  5. VICODIN [Concomitant]
  6. PREVACID [Concomitant]
  7. ENALAPRIL [Concomitant]
  8. ESTRADIOL INJ [Concomitant]
  9. DIGOXIN [Concomitant]
  10. DEPO-PROVERA [Concomitant]
  11. LISINOPRIL [Concomitant]

REACTIONS (4)
  - BLOOD PRESSURE DECREASED [None]
  - DIZZINESS [None]
  - PALLOR [None]
  - SYNCOPE [None]
